FAERS Safety Report 12106020 (Version 2)
Quarter: 2016Q1

REPORT INFORMATION
  Report Type: Spontaneous
  Country: IT (occurrence: IT)
  Receive Date: 20160223
  Receipt Date: 20160307
  Transmission Date: 20160526
  Serious: Yes (Other)
  Sender: FDA-Public Use
  Company Number: IT-ASTRAZENECA-2016SE16462

PATIENT
  Age: 21599 Day
  Sex: Male
  Weight: 68 kg

DRUGS (10)
  1. OMEPRAZOLE. [Concomitant]
     Active Substance: OMEPRAZOLE
     Route: 048
  2. DUOPLAVIN [Concomitant]
     Active Substance: ASPIRIN\CLOPIDOGREL
     Dosage: 75 MG / 100 MG, 1 DF WITH UNKNOWN FREQUENCY
     Route: 048
     Dates: end: 20150909
  3. TRIATEC [Concomitant]
     Active Substance: RAMIPRIL
     Route: 048
  4. TORVAST [Concomitant]
     Active Substance: ATORVASTATIN
     Route: 048
  5. BRILIQUE [Suspect]
     Active Substance: TICAGRELOR
     Indication: ACUTE CORONARY SYNDROME
     Route: 048
     Dates: start: 20150819, end: 20150904
  6. LASIX [Concomitant]
     Active Substance: FUROSEMIDE
     Route: 048
  7. DILATREND [Concomitant]
     Active Substance: CARVEDILOL
     Route: 048
  8. NORVASC [Concomitant]
     Active Substance: AMLODIPINE BESYLATE
     Route: 048
  9. INSULIN [Concomitant]
     Active Substance: INSULIN NOS
  10. ALDACTONE [Concomitant]
     Active Substance: SPIRONOLACTONE
     Route: 048

REACTIONS (3)
  - Gastric cancer [Unknown]
  - Gastric haemorrhage [Recovering/Resolving]
  - Anaemia [Recovering/Resolving]

NARRATIVE: CASE EVENT DATE: 20150904
